FAERS Safety Report 9144366 (Version 1)
Quarter: 2013Q1

REPORT INFORMATION
  Report Type: Report from Study
  Country: US (occurrence: US)
  Receive Date: 20130306
  Receipt Date: 20130306
  Transmission Date: 20140127
  Serious: Yes (Hospitalization)
  Sender: FDA-Public Use
  Company Number: US-BAXTER-2013BAX007392

PATIENT
  Age: 72 Year
  Sex: Female

DRUGS (1)
  1. ARALAST NP [Suspect]
     Indication: PRODUCT USED FOR UNKNOWN INDICATION
     Route: 065
     Dates: end: 2008

REACTIONS (2)
  - Respiratory syncytial virus infection [Not Recovered/Not Resolved]
  - Bacteraemia [Not Recovered/Not Resolved]
